FAERS Safety Report 11166068 (Version 1)
Quarter: 2015Q2

REPORT INFORMATION
  Report Type: Spontaneous
  Country: US (occurrence: US)
  Receive Date: 20150604
  Receipt Date: 20150604
  Transmission Date: 20150821
  Serious: Yes (Hospitalization)
  Sender: FDA-Public Use
  Company Number: US-JNJFOC-20150601277

PATIENT
  Age: 35 Year
  Sex: Female
  Weight: 58.97 kg

DRUGS (3)
  1. IMODIUM A-D [Suspect]
     Active Substance: LOPERAMIDE HYDROCHLORIDE
     Route: 048
  2. ALKA SELTZER [Concomitant]
     Active Substance: ANHYDROUS CITRIC ACID\ASPIRIN\SODIUM BICARBONATE
     Indication: ABDOMINAL DISCOMFORT
     Dosage: 2 PILLS ONCE
     Route: 065
     Dates: start: 20150512
  3. IMODIUM A-D [Suspect]
     Active Substance: LOPERAMIDE HYDROCHLORIDE
     Indication: DIARRHOEA
     Route: 048
     Dates: start: 20150512, end: 20150512

REACTIONS (5)
  - Peripheral swelling [Unknown]
  - Urticaria [Recovered/Resolved]
  - Skin exfoliation [Recovering/Resolving]
  - Pain in extremity [Unknown]
  - Abasia [Unknown]

NARRATIVE: CASE EVENT DATE: 20150513
